FAERS Safety Report 7639950-1 (Version None)
Quarter: 2011Q3

REPORT INFORMATION
  Report Type: 
  Country: None (occurrence: None)
  Receive Date: 20110727
  Receipt Date: 20110711
  Transmission Date: 20111222
  Serious: Yes (Hospitalization)
  Sender: FDA-Public Use
  Company Number: PHHY2011BR62120

PATIENT
  Sex: Male

DRUGS (6)
  1. PANTOPRAZOLE [Concomitant]
     Indication: PROPHYLAXIS AGAINST GASTROINTESTINAL ULCER
     Dosage: 1 DF, UNK
     Route: 048
  2. BENERVA [Concomitant]
     Dosage: 2 DF, UNK
     Route: 048
  3. EXFORGE [Suspect]
     Indication: HYPERTENSION
     Dosage: 1 DF, DAILY
     Route: 048
  4. LIPITOR [Concomitant]
     Indication: BLOOD CHOLESTEROL
     Dosage: 1 DF, UNK
     Route: 048
     Dates: start: 20101101
  5. LYRICA [Concomitant]
     Indication: POOR PERIPHERAL CIRCULATION
     Dosage: 2 DF, UNK
     Route: 048
     Dates: start: 20101101
  6. MONOCORDIL [Concomitant]
     Indication: CARDIAC DISORDER
     Dosage: 1 DF, UNK
     Route: 048
     Dates: start: 20101101

REACTIONS (3)
  - CEREBROVASCULAR ACCIDENT [None]
  - INFARCTION [None]
  - DYSPNOEA [None]
